FAERS Safety Report 12991840 (Version 1)
Quarter: 2016Q4

REPORT INFORMATION
  Report Type: Spontaneous
  Country: BR (occurrence: BR)
  Receive Date: 20161201
  Receipt Date: 20161201
  Transmission Date: 20170207
  Serious: Yes (Other)
  Sender: FDA-Public Use
  Company Number: BR-AMGEN-BRASP2016125099

PATIENT
  Age: 72 Year
  Sex: Male

DRUGS (1)
  1. ENBREL [Suspect]
     Active Substance: ETANERCEPT
     Indication: PSORIASIS
     Dosage: 50MG, ONCE WEEKLY
     Route: 065
     Dates: start: 201509, end: 201609

REACTIONS (6)
  - Depressed mood [Recovering/Resolving]
  - Confusional state [Recovering/Resolving]
  - Bladder disorder [Unknown]
  - Tuberculosis [Recovered/Resolved]
  - Anxiety [Unknown]
  - Sleep disorder [Recovered/Resolved]

NARRATIVE: CASE EVENT DATE: 2016
